FAERS Safety Report 22344669 (Version 1)
Quarter: 2023Q2

REPORT INFORMATION
  Report Type: Spontaneous
  Country: US (occurrence: US)
  Receive Date: 20230519
  Receipt Date: 20230519
  Transmission Date: 20230722
  Serious: No
  Sender: FDA-Public Use
  Company Number: US-AMNEAL PHARMACEUTICALS-2022-AMRX-03276

PATIENT
  Sex: Female

DRUGS (1)
  1. BENDROFLUMETHIAZIDE\NADOLOL [Suspect]
     Active Substance: BENDROFLUMETHIAZIDE\NADOLOL
     Indication: Product used for unknown indication
     Route: 065

REACTIONS (3)
  - Dyspnoea [Unknown]
  - Rash [Unknown]
  - Cough [Unknown]
